FAERS Safety Report 14779040 (Version 1)
Quarter: 2018Q2

REPORT INFORMATION
  Report Type: Report from Study
  Country: CA (occurrence: CA)
  Receive Date: 20180419
  Receipt Date: 20180419
  Transmission Date: 20180711
  Serious: Yes (Life-Threatening, Hospitalization)
  Sender: FDA-Public Use
  Company Number: CA-ASTRAZENECA-2016SF32266

PATIENT
  Age: 58 Year
  Sex: Male

DRUGS (20)
  1. TYLENOL [Concomitant]
     Active Substance: ACETAMINOPHEN
     Indication: PYREXIA
     Dosage: 1-2 PILLS
     Dates: start: 201611
  2. SEPTRA DS [Concomitant]
     Active Substance: SULFAMETHOXAZOLE\TRIMETHOPRIM
     Indication: PNEUMOCYSTIS JIROVECII PNEUMONIA
     Dosage: 1 TABLET
     Dates: start: 201611
  3. MODAFINIL. [Concomitant]
     Active Substance: MODAFINIL
     Indication: FATIGUE
     Dosage: 100.0MG AS REQUIRED
     Dates: start: 201601
  4. ACETAMINOPHEN. [Concomitant]
     Active Substance: ACETAMINOPHEN
     Indication: ARTHRALGIA
     Dosage: 500.0MG AS REQUIRED
     Dates: start: 20161012
  5. ROBITUSSIN (GUAIFENESIN) [Concomitant]
     Active Substance: GUAIFENESIN
     Indication: COUGH
     Dosage: 15.0ML AS REQUIRED
     Dates: start: 201611
  6. RANITIDINE. [Concomitant]
     Active Substance: RANITIDINE
     Indication: COUGH
     Dates: start: 201611
  7. ACALABRUTINIB. [Suspect]
     Active Substance: ACALABRUTINIB
     Indication: CHRONIC LYMPHOCYTIC LEUKAEMIA
     Route: 048
     Dates: start: 20160921, end: 20161204
  8. AERIUS [Concomitant]
     Active Substance: DESLORATADINE
     Indication: URTICARIA
     Dosage: 1 PILL AS NEEDED
     Dates: start: 201606
  9. GRAVOL [Concomitant]
     Active Substance: DIMENHYDRINATE
     Indication: NAUSEA
     Dosage: 25 MG
     Dates: start: 201612
  10. BETA DERM [Concomitant]
     Indication: ECZEMA
     Dosage: 0.2% AS REQUIRED
     Dates: start: 1990
  11. ACALABRUTINIB. [Suspect]
     Active Substance: ACALABRUTINIB
     Indication: CHRONIC LYMPHOCYTIC LEUKAEMIA
     Route: 048
     Dates: start: 20161205, end: 20161205
  12. MICAFUNGIN [Concomitant]
     Active Substance: MICAFUNGIN
     Indication: ORAL CANDIDIASIS
     Dosage: 100 MG
     Dates: start: 201612
  13. IMODIUM [Concomitant]
     Active Substance: LOPERAMIDE HYDROCHLORIDE
     Indication: DIARRHOEA
     Dosage: 2 MG
     Dates: start: 201612
  14. ONDANSETRON [Concomitant]
     Active Substance: ONDANSETRON
     Indication: NAUSEA
     Dosage: 8 MG
     Dates: start: 201612
  15. METOCLOPRAMIDE. [Concomitant]
     Active Substance: METOCLOPRAMIDE
     Indication: GASTROOESOPHAGEAL REFLUX DISEASE
     Dosage: 10 MG
     Dates: start: 201606
  16. PRED FORTE [Concomitant]
     Active Substance: PREDNISOLONE ACETATE
     Indication: IRIDOCYCLITIS
     Dosage: 1 DROP TWICE PER DAY
     Dates: start: 201208
  17. VITAMIN D [Concomitant]
     Active Substance: CHOLECALCIFEROL
     Indication: SUPPLEMENTATION THERAPY
     Dosage: 1000 UNITS ONCE PER DAY
     Dates: start: 2000
  18. PANTOLOC [Concomitant]
     Active Substance: PANTOPRAZOLE SODIUM
     Indication: DIARRHOEA
     Dosage: 40 MG
     Dates: start: 201612
  19. ACYCLOVIR. [Concomitant]
     Active Substance: ACYCLOVIR
     Indication: NAUSEA
     Dosage: 400 MG
     Dates: start: 201612
  20. METOCLOPRAMIDE. [Concomitant]
     Active Substance: METOCLOPRAMIDE
     Indication: GASTROOESOPHAGEAL REFLUX DISEASE
     Dosage: 10.0MG AS REQUIRED
     Dates: start: 201606

REACTIONS (1)
  - Histiocytosis haematophagic [Recovered/Resolved]

NARRATIVE: CASE EVENT DATE: 20161205
